FAERS Safety Report 18558886 (Version 2)
Quarter: 2020Q4

REPORT INFORMATION
  Report Type: Report from Study
  Country: AU (occurrence: AU)
  Receive Date: 20201130
  Receipt Date: 20201203
  Transmission Date: 20210114
  Serious: Yes (Hospitalization)
  Sender: FDA-Public Use
  Company Number: AU-BRISTOL-MYERS SQUIBB COMPANY-BMS-2020-100990

PATIENT
  Age: 74 Year
  Sex: Male

DRUGS (4)
  1. IPILIMUMAB [Suspect]
     Active Substance: IPILIMUMAB
     Dosage: 209 MILLIGRAM, Q3WK
     Route: 042
     Dates: start: 20201016, end: 20201106
  2. NIVOLUMAB [Suspect]
     Active Substance: NIVOLUMAB
     Indication: METASTATIC MALIGNANT MELANOMA
     Dosage: 70 MILLIGRAM, Q3WK
     Route: 042
     Dates: start: 20200923
  3. IPILIMUMAB [Suspect]
     Active Substance: IPILIMUMAB
     Indication: METASTATIC MALIGNANT MELANOMA
     Dosage: 209 MILLIGRAM, Q3WK
     Route: 042
     Dates: start: 20200923
  4. NIVOLUMAB [Suspect]
     Active Substance: NIVOLUMAB
     Dosage: 70 MILLIGRAM, Q3WK
     Route: 042
     Dates: start: 20201016, end: 20201106

REACTIONS (2)
  - Hyponatraemia [Recovered/Resolved]
  - Diarrhoea [Recovered/Resolved]

NARRATIVE: CASE EVENT DATE: 20201123
